FAERS Safety Report 9342559 (Version 2)
Quarter: 2013Q3

REPORT INFORMATION
  Report Type: Spontaneous
  Country: US (occurrence: US)
  Receive Date: 20130611
  Receipt Date: 20130716
  Transmission Date: 20140515
  Serious: Yes (Hospitalization)
  Sender: FDA-Public Use
  Company Number: US-009507513-1306USA003672

PATIENT
  Age: 27 Year
  Sex: Female

DRUGS (1)
  1. SAPHRIS [Suspect]
     Indication: BIPOLAR I DISORDER
     Dosage: 10 MG, TWICE DAILY
     Route: 060
     Dates: start: 2013, end: 201305

REACTIONS (2)
  - Drug dependence [Recovered/Resolved]
  - Therapeutic response decreased [Unknown]
